FAERS Safety Report 6899862-8 (Version None)
Quarter: 2010Q3

REPORT INFORMATION
  Report Type: 
  Country: None (occurrence: None)
  Receive Date: 20100803
  Receipt Date: 20100720
  Transmission Date: 20110219
  Serious: Yes (Hospitalization)
  Sender: FDA-Public Use
  Company Number: US-ELI_LILLY_AND_COMPANY-US201007006077

PATIENT
  Sex: Male

DRUGS (8)
  1. FORTEO [Suspect]
     Indication: BONE DENSITY DECREASED
     Dosage: 20 UG, DAILY (1/D)
     Route: 065
     Dates: start: 20091201
  2. TERAZOSIN HCL [Concomitant]
  3. METOPROLOL [Concomitant]
  4. COUMADIN [Concomitant]
  5. CRESTOR [Concomitant]
  6. CALCIUM [Concomitant]
  7. MULTI-VITAMIN [Concomitant]
  8. MOBIC [Concomitant]

REACTIONS (1)
  - HIP ARTHROPLASTY [None]
